FAERS Safety Report 12624586 (Version 1)
Quarter: 2016Q3

REPORT INFORMATION
  Report Type: Spontaneous
  Country: US (occurrence: None)
  Receive Date: 20160804
  Receipt Date: 20160804
  Transmission Date: 20161109
  Serious: Yes (Disabling)
  Sender: FDA-Public Use
  Company Number: None

PATIENT
  Age: 87 Year
  Sex: Female
  Weight: 63.5 kg

DRUGS (2)
  1. BACITRACIN OPH OINT PERRIGO [Suspect]
     Active Substance: BACITRACIN
     Indication: ANTIBIOTIC PROPHYLAXIS
     Route: 047
     Dates: start: 20160727, end: 20160730
  2. LOSARTAN. [Concomitant]
     Active Substance: LOSARTAN

REACTIONS (6)
  - Drug effect decreased [None]
  - Eye irritation [None]
  - Eye pain [None]
  - Eye swelling [None]
  - Blindness unilateral [None]
  - Dizziness [None]

NARRATIVE: CASE EVENT DATE: 20160727
